FAERS Safety Report 21576103 (Version 2)
Quarter: 2022Q4

REPORT INFORMATION
  Report Type: Other
  Country: US (occurrence: None)
  Receive Date: 20221110
  Receipt Date: 20221111
  Transmission Date: 20230113
  Serious: No
  Sender: FDA-Public Use
  Company Number: US-ROCHE-3208750

PATIENT
  Age: 70 Year
  Sex: Male

DRUGS (4)
  1. GAVRETO [Suspect]
     Active Substance: PRALSETINIB
     Indication: Lung neoplasm malignant
     Dosage: TAKE 4 CAPSULE(S) BY MOUTH DAILY
     Route: 048
  2. GAVRETO [Suspect]
     Active Substance: PRALSETINIB
     Indication: Lung disorder
  3. GAVRETO [Suspect]
     Active Substance: PRALSETINIB
     Indication: White blood cell count increased
  4. GAVRETO [Suspect]
     Active Substance: PRALSETINIB
     Indication: Leukocytosis

REACTIONS (1)
  - Hypertransaminasaemia [Not Recovered/Not Resolved]

NARRATIVE: CASE EVENT DATE: 20221003
